FAERS Safety Report 23854698 (Version 1)
Quarter: 2024Q2

REPORT INFORMATION
  Report Type: Other
  Country: US (occurrence: US)
  Receive Date: 20240514
  Receipt Date: 20240514
  Transmission Date: 20240715
  Serious: Yes (Other)
  Sender: FDA-Public Use
  Company Number: US-B.Braun Medical Inc.-2156959

PATIENT
  Age: 48 Year
  Sex: Male

DRUGS (4)
  1. HEPARIN SODIUM IN DEXTROSE [Suspect]
     Active Substance: HEPARIN SODIUM
     Indication: Anticoagulant therapy
  2. SODIUM CHLORIDE [Suspect]
     Active Substance: SODIUM CHLORIDE
  3. ALBUMIN HUMAN [Suspect]
     Active Substance: ALBUMIN HUMAN
  4. CITRATE [Suspect]
     Active Substance: CITRIC ACID MONOHYDRATE

REACTIONS (1)
  - Drug ineffective [Unknown]
